FAERS Safety Report 6542157-2 (Version None)
Quarter: 2010Q1

REPORT INFORMATION
  Report Type: 
  Country: None (occurrence: None)
  Receive Date: 20100119
  Receipt Date: 20100113
  Transmission Date: 20100710
  Serious: Yes (Hospitalization, Other)
  Sender: FDA-Public Use
  Company Number: IT-JNJFOC-20100104806

PATIENT
  Sex: Male

DRUGS (6)
  1. LEVOXACIN [Suspect]
     Indication: CYSTITIS
     Route: 048
  2. NITROGLYCERIN [Concomitant]
     Route: 065
  3. OMEPRAZOLE [Concomitant]
     Route: 065
  4. IBUPROFEN [Concomitant]
     Route: 065
  5. ASPIRIN [Concomitant]
     Route: 065
  6. BETAXOLOL HYDROCHLORIDE [Concomitant]
     Route: 065

REACTIONS (4)
  - DIZZINESS [None]
  - DYSSTASIA [None]
  - PAIN IN EXTREMITY [None]
  - PARAESTHESIA [None]
